FAERS Safety Report 19622797 (Version 1)
Quarter: 2021Q3

REPORT INFORMATION
  Report Type: Spontaneous
  Country: US (occurrence: US)
  Receive Date: 20210728
  Receipt Date: 20210728
  Transmission Date: 20211014
  Serious: Yes (Death)
  Sender: FDA-Public Use
  Company Number: NVSC2021US170485

PATIENT
  Age: 76 Year
  Sex: Female

DRUGS (2)
  1. RANITIDINE. [Suspect]
     Active Substance: RANITIDINE
     Indication: HYPERCHLORHYDRIA
     Dosage: 150 MG, BID
     Route: 065
     Dates: start: 200201, end: 201807
  2. RANITIDINE. [Suspect]
     Active Substance: RANITIDINE
     Indication: HYPERCHLORHYDRIA
     Dosage: 150 MG, BID
     Route: 065
     Dates: start: 200201, end: 201807

REACTIONS (2)
  - Pancreatic carcinoma stage IV [Fatal]
  - Lung carcinoma cell type unspecified stage IV [Fatal]

NARRATIVE: CASE EVENT DATE: 20180621
